FAERS Safety Report 5141244-3 (Version None)
Quarter: 2006Q4

REPORT INFORMATION
  Report Type: 
  Country: None (occurrence: None)
  Receive Date: 20061101
  Receipt Date: 20061019
  Transmission Date: 20070319
  Serious: Yes (Other)
  Sender: FDA-Public Use
  Company Number: PHBS2006BE16418

PATIENT
  Age: 59 Year
  Sex: Female

DRUGS (3)
  1. CHEMOTHERAPEUTICS,OTHER [Concomitant]
     Route: 065
  2. HORMONES [Concomitant]
     Route: 065
  3. ZOMETA [Suspect]
     Indication: BREAST CANCER METASTATIC
     Route: 065
     Dates: start: 20030801, end: 20060630

REACTIONS (1)
  - OSTEONECROSIS [None]
